FAERS Safety Report 7128402-3 (Version None)
Quarter: 2010Q4

REPORT INFORMATION
  Report Type: 
  Country: None (occurrence: None)
  Receive Date: 20101130
  Receipt Date: 20101118
  Transmission Date: 20110411
  Serious: Yes (Other)
  Sender: FDA-Public Use
  Company Number: PHHY2010CA24345

PATIENT
  Sex: Female

DRUGS (3)
  1. SANDOSTATIN LAR [Suspect]
     Indication: SMALL INTESTINE CARCINOMA
     Dosage: 10 MG, QMO
     Route: 030
     Dates: start: 20100412
  2. SANDOSTATIN LAR [Suspect]
     Dosage: 10 MG, QMO
     Route: 030
     Dates: start: 20100705
  3. SANDOSTATIN LAR [Suspect]
     Dosage: 5 MG, QMO
     Route: 030

REACTIONS (11)
  - ABDOMINAL PAIN [None]
  - CHILLS [None]
  - COUGH [None]
  - DIARRHOEA [None]
  - HAEMOPTYSIS [None]
  - INJECTION SITE ERYTHEMA [None]
  - INJECTION SITE PAIN [None]
  - INJURY [None]
  - NAUSEA [None]
  - PYREXIA [None]
  - VOMITING [None]
